FAERS Safety Report 10062569 (Version 1)
Quarter: 2014Q2

REPORT INFORMATION
  Report Type: Report from Study
  Country: CN (occurrence: CN)
  Receive Date: 20140407
  Receipt Date: 20140407
  Transmission Date: 20141212
  Serious: Yes (Death)
  Sender: FDA-Public Use
  Company Number: CN-SA-2014SA042417

PATIENT
  Sex: 0

DRUGS (8)
  1. ANTI-THYMOCYTE GLOBULIN (RABBIT) [Suspect]
     Indication: BONE MARROW CONDITIONING REGIMEN
     Dosage: ATG WAS ADMINISTERED FROM DAYS -5 TO -2
     Route: 065
  2. CICLOSPORIN [Concomitant]
     Indication: PROPHYLAXIS AGAINST GRAFT VERSUS HOST DISEASE
     Route: 042
  3. CICLOSPORIN [Concomitant]
     Indication: PROPHYLAXIS AGAINST GRAFT VERSUS HOST DISEASE
     Route: 048
  4. MYCOPHENOLATE MOFETIL [Concomitant]
     Indication: PROPHYLAXIS AGAINST GRAFT VERSUS HOST DISEASE
     Dosage: FROM DAY 9 TO DAY 30 AFTER TRANSPLANTATION.
     Route: 048
  5. MYCOPHENOLATE MOFETIL [Concomitant]
     Indication: PROPHYLAXIS AGAINST GRAFT VERSUS HOST DISEASE
     Dosage: ON DAY 30 AND WAS DISCONTINUED OVER DAYS 45-60
     Route: 048
  6. METHOTREXATE [Concomitant]
     Indication: PROPHYLAXIS AGAINST GRAFT VERSUS HOST DISEASE
     Dosage: ON DAY 1
     Route: 042
  7. METHOTREXATE [Concomitant]
     Indication: PROPHYLAXIS AGAINST GRAFT VERSUS HOST DISEASE
     Dosage: ON DAY 3,5 AND 11 AFTER TRANSPLANTATION
     Route: 042
  8. DEXAMETHASONE [Concomitant]

REACTIONS (1)
  - Post transplant lymphoproliferative disorder [Fatal]
